FAERS Safety Report 6179402-1 (Version None)
Quarter: 2009Q2

REPORT INFORMATION
  Report Type: 
  Country: None (occurrence: None)
  Receive Date: 20090505
  Receipt Date: 20090427
  Transmission Date: 20091009
  Serious: Yes (Other)
  Sender: FDA-Public Use
  Company Number: A0778427A

PATIENT
  Age: 77 Year
  Sex: Male

DRUGS (3)
  1. AVODART [Suspect]
     Indication: BENIGN PROSTATIC HYPERPLASIA
     Dosage: .5MG PER DAY
     Route: 048
     Dates: start: 20090313
  2. VERAPAMIL [Concomitant]
  3. ATENOLOL [Concomitant]

REACTIONS (6)
  - BALANCE DISORDER [None]
  - DEHYDRATION [None]
  - LOSS OF CONSCIOUSNESS [None]
  - MOTOR DYSFUNCTION [None]
  - NOCTURIA [None]
  - URINE OUTPUT INCREASED [None]
